FAERS Safety Report 8909573 (Version 1)
Quarter: 2012Q4

REPORT INFORMATION
  Report Type: 
  Country: BR (occurrence: BR)
  Receive Date: 20121115
  Receipt Date: 20121115
  Transmission Date: 20130627
  Serious: Yes (Other)
  Sender: FDA-Public Use
  Company Number: BR-JNJFOC-20121013491

PATIENT

DRUGS (2)
  1. METHYLPHENIDATE HYDROCHLORIDE [Suspect]
     Indication: INTENTIONAL DRUG MISUSE
     Route: 048
  2. METHYLPHENIDATE HYDROCHLORIDE [Suspect]
     Indication: WEIGHT DECREASED
     Route: 048

REACTIONS (5)
  - Drug abuse [Unknown]
  - Drug dependence [Unknown]
  - Intentional drug misuse [Unknown]
  - Off label use [Unknown]
  - Incorrect route of drug administration [Unknown]
